FAERS Safety Report 11659581 (Version 1)
Quarter: 2015Q4

REPORT INFORMATION
  Report Type: Spontaneous
  Country: IT (occurrence: IT)
  Receive Date: 20151026
  Receipt Date: 20151026
  Transmission Date: 20160304
  Serious: Yes (Other)
  Sender: FDA-Public Use
  Company Number: IT-WATSON-2015-22927

PATIENT
  Age: 15 Year
  Sex: Male

DRUGS (3)
  1. GENTAMICIN (UNKNOWN) [Suspect]
     Active Substance: GENTAMICIN
     Indication: ACNE
     Dosage: UNK
     Route: 061
  2. LYMECYCLINE (UNKNOWN) [Suspect]
     Active Substance: LYMECYCLINE
     Indication: ACNE
     Dosage: UNK
     Route: 048
  3. CLARITHROMYCIN (UNKNOWN) [Suspect]
     Active Substance: CLARITHROMYCIN
     Indication: ACNE
     Dosage: UNK
     Route: 048

REACTIONS (1)
  - Folliculitis [Recovered/Resolved with Sequelae]
